FAERS Safety Report 7337197-X (Version None)
Quarter: 2011Q1

REPORT INFORMATION
  Report Type: 
  Country: None (occurrence: None)
  Receive Date: 20110308
  Receipt Date: 20110303
  Transmission Date: 20110831
  Serious: No
  Sender: FDA-Public Use
  Company Number: US-PFIZER INC-2011002045

PATIENT
  Sex: Male
  Weight: 86.1 kg

DRUGS (3)
  1. PLAVIX [Concomitant]
     Indication: PROPHYLAXIS
     Dosage: 75 MG, 1X/DAY
     Route: 048
  2. LIPITOR [Suspect]
     Indication: BLOOD CHOLESTEROL INCREASED
     Dosage: 10 MG, 1X/DAY
     Route: 048
     Dates: start: 20090101
  3. ASPIRIN [Concomitant]
     Indication: ANTICOAGULANT THERAPY
     Dosage: 325 MG, 1X/DAY

REACTIONS (5)
  - ABNORMAL DREAMS [None]
  - MYALGIA [None]
  - FATIGUE [None]
  - MOOD SWINGS [None]
  - DRUG INTOLERANCE [None]
